FAERS Safety Report 10862143 (Version 2)
Quarter: 2015Q2

REPORT INFORMATION
  Report Type: Spontaneous
  Country: FR (occurrence: FR)
  Receive Date: 20150224
  Receipt Date: 20150624
  Transmission Date: 20150821
  Serious: Yes (Other)
  Sender: FDA-Public Use
  Company Number: FR-ABBVIE-15P-056-1349934-00

PATIENT
  Age: 23 Year
  Sex: Female

DRUGS (4)
  1. PREZISTA [Suspect]
     Active Substance: DARUNAVIR ETHANOLATE
     Indication: EXPOSURE VIA BLOOD
     Route: 048
     Dates: start: 20141223, end: 20150101
  2. ORELOX [Suspect]
     Active Substance: CEFPODOXIME
     Indication: INFECTION
     Route: 048
     Dates: start: 20141230, end: 20150101
  3. NORVIR [Suspect]
     Active Substance: RITONAVIR
     Indication: EXPOSURE VIA BLOOD
     Route: 048
     Dates: start: 20141223, end: 20150101
  4. TRUVADA [Suspect]
     Active Substance: EMTRICITABINE\TENOFOVIR DISOPROXIL FUMARATE
     Indication: EXPOSURE VIA BLOOD
     Route: 048
     Dates: start: 20141223, end: 20150101

REACTIONS (2)
  - Prurigo [Recovered/Resolved]
  - Dyspnoea [Recovered/Resolved]

NARRATIVE: CASE EVENT DATE: 20141231
